FAERS Safety Report 6105442-4 (Version None)
Quarter: 2009Q1

REPORT INFORMATION
  Report Type: 
  Country: None (occurrence: None)
  Receive Date: 20090306
  Receipt Date: 20090226
  Transmission Date: 20090719
  Serious: Yes (Hospitalization, Congenital Anomaly)
  Sender: FDA-Public Use
  Company Number: A0681918A

PATIENT
  Sex: Male

DRUGS (12)
  1. PAXIL CR [Suspect]
     Indication: DEPRESSION
     Dosage: 37.5MG PER DAY
     Dates: start: 20030101, end: 20060801
  2. VITAMIN TAB [Concomitant]
     Dates: start: 20060901, end: 20070701
  3. TYLENOL [Concomitant]
  4. HYDROCODONE BITARTRATE + ACETAMINOPHEN [Concomitant]
  5. ZOFRAN [Concomitant]
     Dates: start: 20061017
  6. TORADOL [Concomitant]
     Dates: start: 20061017
  7. IBUPROFEN [Concomitant]
  8. NASONEX [Concomitant]
  9. REGLAN [Concomitant]
     Dates: start: 20061018
  10. BENADRYL [Concomitant]
     Dates: start: 20061018
  11. MORPHINE [Concomitant]
     Dates: start: 20060914
  12. EFFEXOR XR [Concomitant]
     Dates: start: 20060831

REACTIONS (11)
  - ARRHYTHMIA [None]
  - ATRIAL SEPTAL DEFECT [None]
  - BLOOD PRESSURE ABNORMAL [None]
  - CARDIAC FAILURE [None]
  - DRUG EXPOSURE DURING PREGNANCY [None]
  - FLUID RETENTION [None]
  - HEART VALVE INCOMPETENCE [None]
  - HYPOPLASTIC LEFT HEART SYNDROME [None]
  - MITRAL VALVE ATRESIA [None]
  - PULMONARY ARTERY STENOSIS [None]
  - SWELLING [None]
